FAERS Safety Report 15113538 (Version 1)
Quarter: 2018Q3

REPORT INFORMATION
  Report Type: Spontaneous
  Country: DE (occurrence: DE)
  Receive Date: 20180706
  Receipt Date: 20180706
  Transmission Date: 20181010
  Serious: Yes (Other)
  Sender: FDA-Public Use
  Company Number: DE-ASTRAZENECA-2018SE85774

PATIENT
  Age: 51 Year

DRUGS (1)
  1. OSIMERTINIB. [Suspect]
     Active Substance: OSIMERTINIB
     Route: 048
     Dates: start: 201602, end: 201706

REACTIONS (5)
  - Metastases to bone [Unknown]
  - Tumour marker increased [Unknown]
  - Cancer pain [Unknown]
  - Rash [Unknown]
  - Malignant neoplasm progression [Unknown]
